FAERS Safety Report 21252185 (Version 1)
Quarter: 2022Q3

REPORT INFORMATION
  Report Type: Spontaneous
  Country: US (occurrence: US)
  Receive Date: 20220825
  Receipt Date: 20220825
  Transmission Date: 20221026
  Serious: Yes (Hospitalization)
  Sender: FDA-Public Use
  Company Number: US-MLMSERVICE-20220815-3734173-1

PATIENT
  Age: 67 Year
  Sex: Female

DRUGS (7)
  1. HYDROCORTISONE [Suspect]
     Active Substance: HYDROCORTISONE
     Indication: Product used for unknown indication
     Dosage: ONE TIME DOSE
     Route: 065
  2. HYDROCORTISONE [Suspect]
     Active Substance: HYDROCORTISONE
     Dosage: POD 3
     Route: 065
  3. HYDROCORTISONE [Suspect]
     Active Substance: HYDROCORTISONE
     Route: 065
  4. DEXAMETHASONE [Suspect]
     Active Substance: DEXAMETHASONE
     Indication: Product used for unknown indication
     Route: 065
  5. DEXAMETHASONE [Suspect]
     Active Substance: DEXAMETHASONE
     Route: 065
  6. DEXAMETHASONE [Suspect]
     Active Substance: DEXAMETHASONE
     Indication: Product used for unknown indication
     Dosage: ONCE DURING POD1-2
     Route: 065
  7. PREDNISONE [Suspect]
     Active Substance: PREDNISONE
     Indication: Back pain
     Dosage: SIX COURSES OF PREDNISONE, 50 MG DAILY FOR 5 DAYS OVER A 3-MONTH PERIOD
     Route: 065

REACTIONS (3)
  - Septic shock [Recovered/Resolved]
  - Herpes simplex oesophagitis [Recovered/Resolved]
  - Systemic candida [Recovered/Resolved]
